FAERS Safety Report 16811627 (Version 1)
Quarter: 2019Q3

REPORT INFORMATION
  Report Type: Report from Study
  Country: CA (occurrence: CA)
  Receive Date: 20190916
  Receipt Date: 20190916
  Transmission Date: 20191005
  Serious: Yes (Other)
  Sender: FDA-Public Use
  Company Number: CA-JNJFOC-20190826200

PATIENT
  Age: 47 Year
  Sex: Female
  Weight: 62.5 kg

DRUGS (1)
  1. STELARA [Suspect]
     Active Substance: USTEKINUMAB
     Indication: CROHN^S DISEASE
     Dosage: STRENGTH = 90 MG
     Route: 058
     Dates: start: 20190314

REACTIONS (4)
  - Abdominal pain [Unknown]
  - General physical health deterioration [Unknown]
  - Frequent bowel movements [Unknown]
  - Ileectomy [Recovering/Resolving]

NARRATIVE: CASE EVENT DATE: 20190820
